FAERS Safety Report 8314630 (Version 2)
Quarter: 2013Q3

REPORT INFORMATION
  Report Type: Spontaneous
  Country: US (occurrence: US)
  Receive Date: 20111228
  Receipt Date: 20130913
  Transmission Date: 20140515
  Serious: Yes (Congenital Anomaly)
  Sender: FDA-Public Use
  Company Number: US-AMGEN-USASP2011067872

PATIENT
  Sex: 0

DRUGS (5)
  1. ENBREL [Suspect]
     Indication: PRODUCT USED FOR UNKNOWN INDICATION
     Dosage: UNK
     Route: 064
  2. PREDNISONE [Concomitant]
     Dosage: UNK
     Route: 064
  3. IBUPROFEN [Concomitant]
     Dosage: UNK
     Route: 064
  4. AMLODIPINE [Concomitant]
     Dosage: UNK
     Route: 064
  5. HYDROCHLOROTHIAZIDE WITH TRIAMTERENE [Concomitant]
     Dosage: UNK
     Route: 064

REACTIONS (3)
  - Congenital cystic kidney disease [Unknown]
  - VACTERL syndrome [Unknown]
  - Foetal exposure during pregnancy [Unknown]
